FAERS Safety Report 14182566 (Version 2)
Quarter: 2018Q1

REPORT INFORMATION
  Report Type: Spontaneous
  Country: US (occurrence: US)
  Receive Date: 20171113
  Receipt Date: 20180118
  Transmission Date: 20180508
  Serious: No
  Sender: FDA-Public Use
  Company Number: US-PFIZER INC-2017484252

PATIENT
  Age: 69 Year
  Sex: Female

DRUGS (1)
  1. EUCRISA [Suspect]
     Active Substance: CRISABOROLE
     Indication: LICHEN PLANUS
     Dosage: UNK, 2X/DAY
     Route: 061
     Dates: start: 201710

REACTIONS (4)
  - Product use in unapproved indication [Unknown]
  - Alopecia [Unknown]
  - Intentional product misuse [Unknown]
  - Urinary tract infection [Unknown]
